FAERS Safety Report 21148327 (Version 1)
Quarter: 2022Q3

REPORT INFORMATION
  Report Type: Report from Study
  Country: US (occurrence: US)
  Receive Date: 20220729
  Receipt Date: 20220729
  Transmission Date: 20221026
  Serious: No
  Sender: FDA-Public Use
  Company Number: US-BIOVITRUM-2022US09011

PATIENT
  Sex: Male

DRUGS (3)
  1. SYNAGIS [Suspect]
     Active Substance: PALIVIZUMAB
     Indication: Antiviral prophylaxis
  2. POLY-VI-FLOR [Concomitant]
  3. LACTULOSE [Concomitant]
     Active Substance: LACTULOSE

REACTIONS (2)
  - Respiratory syncytial virus infection [Unknown]
  - Injection site rash [Unknown]
